FAERS Safety Report 17800397 (Version 2)
Quarter: 2025Q2

REPORT INFORMATION
  Report Type: Spontaneous
  Country: US (occurrence: US)
  Receive Date: 20200519
  Receipt Date: 20250621
  Transmission Date: 20250716
  Serious: Yes (Hospitalization, Other)
  Sender: AUROBINDO
  Company Number: US-MLMSERVICE-20200504-2272350-1

PATIENT
  Age: 42 Year
  Sex: Male

DRUGS (7)
  1. QUETIAPINE [Suspect]
     Active Substance: QUETIAPINE
     Indication: Product used for unknown indication
     Dosage: 50 MILLIGRAM, TWO TIMES A DAY
     Route: 048
  2. FLUOXETINE [Concomitant]
     Active Substance: FLUOXETINE HYDROCHLORIDE
     Indication: Depression
     Dosage: 100 MILLIGRAM, ONCE A DAY
     Route: 065
  3. RISPERIDONE [Concomitant]
     Active Substance: RISPERIDONE
     Indication: Product used for unknown indication
     Dosage: 1 MILLIGRAM, TWO TIMES A DAY
     Route: 065
  4. METOPROLOL [Concomitant]
     Active Substance: METOPROLOL
     Indication: Product used for unknown indication
     Route: 065
  5. METHYLPREDNISOLONE [Concomitant]
     Active Substance: METHYLPREDNISOLONE
     Indication: Encephalitis
     Route: 042
  6. RITUXIMAB [Concomitant]
     Active Substance: RITUXIMAB
     Indication: Encephalitis
     Route: 065
  7. Immunoglobulin [Concomitant]
     Indication: Encephalitis
     Route: 042

REACTIONS (4)
  - Dysarthria [Not Recovered/Not Resolved]
  - Ataxia [Not Recovered/Not Resolved]
  - Disturbance in attention [Recovering/Resolving]
  - Condition aggravated [Not Recovered/Not Resolved]
